FAERS Safety Report 25031523 (Version 1)
Quarter: 2025Q1

REPORT INFORMATION
  Report Type: Spontaneous
  Country: US (occurrence: US)
  Receive Date: 20250303
  Receipt Date: 20250303
  Transmission Date: 20250409
  Serious: Yes (Hospitalization, Other)
  Sender: AMGEN
  Company Number: US-AMGEN-USASP2025037335

PATIENT

DRUGS (5)
  1. ADALIMUMAB [Suspect]
     Active Substance: ADALIMUMAB
     Indication: Colitis ulcerative
     Route: 065
  2. INFLIXIMAB [Suspect]
     Active Substance: INFLIXIMAB
     Indication: Colitis ulcerative
     Route: 065
  3. PREDNISONE [Suspect]
     Active Substance: PREDNISONE
     Indication: Pouchitis
     Route: 048
  4. TOFACITINIB [Concomitant]
     Active Substance: TOFACITINIB
     Indication: Pouchitis
     Dosage: 10 OR 5 MILLIGRAM, BID (TWICE DAILY)
     Route: 065
  5. UPADACITINIB [Concomitant]
     Active Substance: UPADACITINIB
     Indication: Pouchitis
     Dosage: 45 OR 30 MILLIGRAM, QD (ONCE DAILY)
     Route: 065

REACTIONS (9)
  - Crohn^s disease [Unknown]
  - Unevaluable event [Unknown]
  - Clostridium difficile colitis [Unknown]
  - Deep vein thrombosis [Unknown]
  - Pulmonary embolism [Unknown]
  - Sepsis [Unknown]
  - Pneumonia [Unknown]
  - Pouchitis [Unknown]
  - Off label use [Unknown]
